FAERS Safety Report 4421495-3 (Version None)
Quarter: 2004Q3

REPORT INFORMATION
  Report Type: 
  Country: None (occurrence: None)
  Receive Date: 20040709
  Receipt Date: 20030926
  Transmission Date: 20050211
  Serious: Yes (Other)
  Sender: FDA-Public Use
  Company Number: US-SHR-03-015280

PATIENT
  Age: 85 Year
  Sex: Female

DRUGS (3)
  1. ULTRAVIST 300 [Suspect]
     Indication: COMPUTERISED TOMOGRAM
     Dosage: 97 ML, 1 DOSE, INTRAVENOUS
     Route: 042
     Dates: start: 20030925, end: 20030925
  2. BENADRYL [Concomitant]
  3. PREDNISONE [Concomitant]

REACTIONS (3)
  - ERYTHEMA [None]
  - EYELID OEDEMA [None]
  - STRIDOR [None]
